FAERS Safety Report 8810428 (Version 2)
Quarter: 2012Q4

REPORT INFORMATION
  Report Type: 
  Country: DE (occurrence: DE)
  Receive Date: 20120927
  Receipt Date: 20121101
  Transmission Date: 20130627
  Serious: Yes (Hospitalization, Other)
  Sender: FDA-Public Use
  Company Number: DE-AMGEN-DEUSP2012060231

PATIENT
  Age: 73 Year
  Sex: Female

DRUGS (12)
  1. PROLIA [Suspect]
     Indication: OSTEOPOROSIS POSTMENOPAUSAL
     Dosage: 1 vial, UNK
     Route: 042
     Dates: start: 20120808
  2. TOREM                              /01036501/ [Concomitant]
     Indication: POLYURIA
     Dosage: 20 mg, qd
     Route: 048
  3. METOPROLOL [Concomitant]
     Indication: HYPERTENSION
     Dosage: 100 mg, qd
     Route: 048
  4. ASS [Concomitant]
     Indication: PLATELET AGGREGATION INHIBITION
     Dosage: 100 g, qd
     Route: 048
  5. PANTOZOL [Concomitant]
     Indication: GASTRITIS HAEMORRHAGIC
     Dosage: 40 mg, qd
     Route: 048
     Dates: start: 201204
  6. ALLOPURINOL [Concomitant]
     Indication: HYPERURICAEMIA
     Dosage: 100 mg, qd
     Route: 048
     Dates: start: 201204
  7. VITAMIN B12 AND FOLIC ACID [Concomitant]
     Indication: VITAMIN B12 DEFICIENCY
     Dosage: 1 DF, qd
     Dates: start: 201207
  8. VITAMIN B12 AND FOLIC ACID [Concomitant]
     Indication: FOLATE DEFICIENCY
  9. NOVALGIN                           /00169801/ [Concomitant]
     Indication: PELVIC PAIN
  10. FENTANYL [Concomitant]
     Indication: PELVIC PAIN
     Dosage: 25 mug, UNK
     Dates: start: 201205
  11. ALFACALCIDOL [Concomitant]
     Indication: VITAMIN D DEFICIENCY
     Dosage: 0.25 mug, qd
     Dates: start: 20120912
  12. DEKRISTOL [Concomitant]
     Indication: VITAMIN D DEFICIENCY
     Dosage: 20000 IU, UNK
     Dates: start: 20120912

REACTIONS (4)
  - Bronchopneumonia [Unknown]
  - Cystitis haemorrhagic [Recovered/Resolved]
  - General physical health deterioration [Not Recovered/Not Resolved]
  - Decreased appetite [Unknown]
